FAERS Safety Report 7088956-2 (Version None)
Quarter: 2010Q4

REPORT INFORMATION
  Report Type: 
  Country: None (occurrence: None)
  Receive Date: 20101029
  Receipt Date: 20101019
  Transmission Date: 20110411
  Serious: Yes (Disabling)
  Sender: FDA-Public Use
  Company Number: OSCN-NO-0604S-0092

PATIENT
  Age: 33 Year
  Sex: Female
  Weight: 66 kg

DRUGS (4)
  1. OMNISCAN [Suspect]
     Dosage: SEE IMAGE
     Route: 042
     Dates: start: 20040615, end: 20040615
  2. OMNISCAN [Suspect]
     Dosage: SEE IMAGE
     Route: 042
     Dates: start: 20041201, end: 20041201
  3. OMNISCAN [Suspect]
     Dosage: SEE IMAGE
     Route: 042
     Dates: start: 20030101, end: 20050101
  4. OMNISCAN [Suspect]
     Dosage: SEE IMAGE
     Route: 042
     Dates: start: 20050603, end: 20050603

REACTIONS (8)
  - ABSCESS INTESTINAL [None]
  - CONDUCTION DISORDER [None]
  - INFECTION [None]
  - INTESTINAL FISTULA [None]
  - NEPHROGENIC SYSTEMIC FIBROSIS [None]
  - SYNCOPE [None]
  - VASOCONSTRICTION [None]
  - WHEELCHAIR USER [None]
